FAERS Safety Report 4992382-7 (Version None)
Quarter: 2006Q1

REPORT INFORMATION
  Report Type: 
  Country: None (occurrence: None)
  Receive Date: 20060315
  Receipt Date: 20050525
  Transmission Date: 20060701
  Serious: Yes (Death, Hospitalization)
  Sender: FDA-Public Use
  Company Number: USA050496076

PATIENT
  Age: 42 Year
  Sex: Female
  Weight: 79.5 kg

DRUGS (5)
  1. GEMZAR [Suspect]
     Indication: BREAST CANCER METASTATIC
     Dosage: 1250
     Dates: start: 20050415
  2. TAXOTERE [Concomitant]
  3. FENTANYL [Concomitant]
  4. LEXAPRO [Concomitant]
  5. MEGACE [Concomitant]

REACTIONS (1)
  - MALIGNANT NEOPLASM PROGRESSION [None]
